FAERS Safety Report 19673493 (Version 1)
Quarter: 2021Q3

REPORT INFORMATION
  Report Type: Spontaneous
  Country: US (occurrence: US)
  Receive Date: 20210806
  Receipt Date: 20210806
  Transmission Date: 20211014
  Serious: Yes (Other)
  Sender: FDA-Public Use
  Company Number: None

PATIENT
  Sex: Female

DRUGS (4)
  1. ELIQUIS [Suspect]
     Active Substance: APIXABAN
  2. CARVEDILOL   TAB 6.25MG [Suspect]
     Active Substance: CARVEDILOL
     Dates: start: 20210608, end: 20210730
  3. ENTRESTO [Suspect]
     Active Substance: SACUBITRIL\VALSARTAN
     Dates: start: 20210607, end: 20210730
  4. SPIRONOLACTONE TAB 25MG [Suspect]
     Active Substance: SPIRONOLACTONE
     Dates: start: 20210712, end: 20210730

REACTIONS (5)
  - Tachycardia [None]
  - Hypotension [None]
  - Therapy cessation [None]
  - Blindness unilateral [None]
  - Visual impairment [None]

NARRATIVE: CASE EVENT DATE: 20210730
